FAERS Safety Report 15508261 (Version 2)
Quarter: 2018Q4

REPORT INFORMATION
  Report Type: Spontaneous
  Country: FR (occurrence: FR)
  Receive Date: 20181016
  Receipt Date: 20181019
  Transmission Date: 20190205
  Serious: Yes (Hospitalization, Other)
  Sender: FDA-Public Use
  Company Number: FR-MYLANLABS-2018M1075809

PATIENT
  Age: 85 Year
  Sex: Male
  Weight: 68 kg

DRUGS (1)
  1. AZATHIOPRINE MYLAN 50 MG, COMPRIM? PELLICUL? S?CABLE [Suspect]
     Active Substance: AZATHIOPRINE
     Indication: MUSCULAR WEAKNESS
     Dosage: 100 MG, QD
     Route: 048
     Dates: start: 20180330, end: 20180507

REACTIONS (3)
  - Agranulocytosis [Recovered/Resolved]
  - Hyperlipasaemia [Recovering/Resolving]
  - Mixed liver injury [Recovered/Resolved]

NARRATIVE: CASE EVENT DATE: 20180430
